FAERS Safety Report 8476735-0 (Version None)
Quarter: 2012Q2

REPORT INFORMATION
  Report Type: 
  Country: None (occurrence: None)
  Receive Date: 20120628
  Receipt Date: 20120620
  Transmission Date: 20120825
  Serious: Yes (Other)
  Sender: FDA-Public Use
  Company Number: IL-BAXTER-2012BAX009835

PATIENT
  Age: 0 Year

DRUGS (2)
  1. GAMMAGARD [Suspect]
     Indication: OFF LABEL USE
  2. GAMMAGARD [Suspect]
     Route: 042

REACTIONS (1)
  - THERAPEUTIC PRODUCT INEFFECTIVE FOR UNAPPROVED INDICATION [None]
